FAERS Safety Report 7789491-6 (Version None)
Quarter: 2011Q3

REPORT INFORMATION
  Report Type: 
  Country: None (occurrence: None)
  Receive Date: 20110930
  Receipt Date: 20110921
  Transmission Date: 20111222
  Serious: Yes (Hospitalization, Other)
  Sender: FDA-Public Use
  Company Number: ES-JNJFOC-20091201529

PATIENT
  Age: 57 Year
  Sex: Male
  Weight: 68 kg

DRUGS (6)
  1. REMICADE [Suspect]
     Indication: RHEUMATOID ARTHRITIS
     Dosage: DOSE REPORTED AS ^5^, UNITS NOT REPORTED
     Route: 042
     Dates: start: 20010330, end: 20010628
  2. ACE INHIBITOR [Concomitant]
  3. FOLIC ACID [Concomitant]
  4. ORAL OPIODS [Concomitant]
  5. DIURETIC [Concomitant]
  6. NSAID [Concomitant]

REACTIONS (4)
  - PLEURAL EFFUSION [None]
  - LOBAR PNEUMONIA [None]
  - BRONCHOPLEURAL FISTULA [None]
  - LUNG ABSCESS [None]
